FAERS Safety Report 8893517 (Version 1)
Quarter: 2012Q4

REPORT INFORMATION
  Report Type: 
  Country: US (occurrence: US)
  Receive Date: 20121107
  Receipt Date: 20121107
  Transmission Date: 20130627
  Serious: No
  Sender: FDA-Public Use
  Company Number: US-AMGEN-USASP2011060646

PATIENT

DRUGS (2)
  1. ENBREL [Suspect]
     Indication: PSORIATIC ARTHROPATHY
     Dosage: 25 mg, 2 times/wk
  2. METHOTREXATE [Concomitant]

REACTIONS (1)
  - Psoriatic arthropathy [Unknown]
